FAERS Safety Report 4495200-9 (Version None)
Quarter: 2004Q4

REPORT INFORMATION
  Report Type: 
  Country: None (occurrence: None)
  Receive Date: 20041108
  Receipt Date: 20040921
  Transmission Date: 20050328
  Serious: Yes (Death)
  Sender: FDA-Public Use
  Company Number: 200412957JP

PATIENT
  Age: 71 Year
  Sex: Male
  Weight: 45.3 kg

DRUGS (3)
  1. TAXOTERE [Suspect]
     Indication: HYPOPHARYNGEAL CANCER RECURRENT
     Route: 041
     Dates: start: 20040824, end: 20040824
  2. RANDA [Suspect]
     Indication: HYPOPHARYNGEAL CANCER RECURRENT
     Route: 041
     Dates: start: 20040824, end: 20040824
  3. FLUOROURACIL [Concomitant]
     Indication: HYPOPHARYNGEAL CANCER RECURRENT
     Route: 041
     Dates: start: 20040824, end: 20040829

REACTIONS (10)
  - BLOOD PRESSURE DECREASED [None]
  - DRUG INEFFECTIVE [None]
  - HEART RATE INCREASED [None]
  - LEUKOPENIA [None]
  - OXYGEN SATURATION DECREASED [None]
  - PCO2 DECREASED [None]
  - PLATELET COUNT DECREASED [None]
  - PO2 DECREASED [None]
  - SEPSIS [None]
  - SOMNOLENCE [None]
